FAERS Safety Report 5307680-7 (Version None)
Quarter: 2007Q2

REPORT INFORMATION
  Report Type: 
  Country: None (occurrence: None)
  Receive Date: 20070425
  Receipt Date: 20070416
  Transmission Date: 20071010
  Serious: Yes (Other)
  Sender: FDA-Public Use
  Company Number: IE-PFIZER INC-2007010165

PATIENT
  Age: 79 Year
  Sex: Female

DRUGS (6)
  1. LYRICA [Suspect]
     Indication: NEURALGIA
     Route: 048
     Dates: start: 20061007, end: 20061018
  2. LANSOPRAZOLE [Concomitant]
     Route: 048
  3. MOVICOL [Concomitant]
     Route: 048
  4. HALOPERIDOL [Concomitant]
     Route: 048
  5. MORPHINE [Concomitant]
     Route: 048
  6. MORPHINE SULFATE [Concomitant]

REACTIONS (8)
  - CONFUSIONAL STATE [None]
  - DRUG TOXICITY [None]
  - FALL [None]
  - FATIGUE [None]
  - FEAR [None]
  - HALLUCINATION [None]
  - MEMORY IMPAIRMENT [None]
  - SOMNOLENCE [None]
